FAERS Safety Report 7238531-1 (Version None)
Quarter: 2011Q1

REPORT INFORMATION
  Report Type: 
  Country: None (occurrence: None)
  Receive Date: 20110121
  Receipt Date: 20110121
  Transmission Date: 20110831
  Serious: Yes (Death, Hospitalization, Disabling)
  Sender: FDA-Public Use
  Company Number: AR-B.I. PHARMACEUTICALS,INC./RIDGEFIELD-2011-RA-00011RA

PATIENT
  Age: 90 Year
  Sex: Female

DRUGS (1)
  1. DABIGATRAN ETEXILATE [Suspect]
     Indication: PROPHYLAXIS
     Dosage: 150 MG
     Route: 048
     Dates: start: 20101203

REACTIONS (6)
  - PYREXIA [None]
  - DEATH [None]
  - URINARY TRACT INFECTION [None]
  - ISCHAEMIC STROKE [None]
  - LUNG DISORDER [None]
  - POSTOPERATIVE WOUND INFECTION [None]
